FAERS Safety Report 5669674-1 (Version None)
Quarter: 2008Q1

REPORT INFORMATION
  Report Type: 
  Country: None (occurrence: None)
  Receive Date: 20080312
  Receipt Date: 20080312
  Transmission Date: 20080703
  Serious: Yes (Life-Threatening, Hospitalization)
  Sender: FDA-Public Use
  Company Number: None

PATIENT
  Age: 47 Year
  Sex: Male
  Weight: 81.6475 kg

DRUGS (2)
  1. AMBIEN [Suspect]
     Indication: INSOMNIA
     Dosage: 12.5 MG. DAILY PM PO
     Route: 048
     Dates: start: 20070919, end: 20070921
  2. ZYPREXA [Suspect]
     Indication: DEPRESSION
     Dosage: 10 MG. DAILY PM PO
     Route: 048
     Dates: start: 20070103, end: 20070921

REACTIONS (3)
  - ABNORMAL SLEEP-RELATED EVENT [None]
  - AMNESIA [None]
  - ROAD TRAFFIC ACCIDENT [None]
